FAERS Safety Report 4591518-X (Version None)
Quarter: 2005Q1

REPORT INFORMATION
  Report Type: 
  Country: None (occurrence: None)
  Receive Date: 20050222
  Receipt Date: 20050209
  Transmission Date: 20050727
  Serious: Yes (Other)
  Sender: FDA-Public Use
  Company Number: 2005028646

PATIENT
  Age: 58 Year
  Sex: Female
  Weight: 64.8644 kg

DRUGS (4)
  1. CELEBREX [Suspect]
     Indication: OSTEOARTHRITIS
     Dosage: 200 MG  QD OR BID ORAL   2 - 3 YEARS AGO
     Route: 048
  2. SERTRALINE HYDROCHLORIDE [Concomitant]
  3. LORAZEPAM [Concomitant]
  4. METOPROLOL [Concomitant]

REACTIONS (2)
  - PANIC REACTION [None]
  - TRANSIENT ISCHAEMIC ATTACK [None]
